FAERS Safety Report 5374350-9 (Version None)
Quarter: 2007Q2

REPORT INFORMATION
  Report Type: 
  Country: None (occurrence: None)
  Receive Date: 20070629
  Receipt Date: 20070620
  Transmission Date: 20071010
  Serious: Yes (Other)
  Sender: FDA-Public Use
  Company Number: PHHO2007PE09558

PATIENT
  Age: 37 Year
  Sex: Male
  Weight: 92 kg

DRUGS (4)
  1. VEA489 VS VAH631 VS VAA489 VS HCTZ/AMLOD [Suspect]
     Indication: HYPERTENSION
     Dosage: DOUBLE BLIND
     Route: 048
     Dates: start: 20070329, end: 20070530
  2. VEA489 VS VAH631 VS VAA489 VS HCTZ/AMLOD [Suspect]
     Dosage: NO TREATMENT
     Dates: start: 20070531
  3. AMLODIPINE [Concomitant]
  4. ENALAPRIL [Concomitant]

REACTIONS (3)
  - BLOOD CREATINE PHOSPHOKINASE INCREASED [None]
  - HEPATIC STEATOSIS [None]
  - MYALGIA [None]
